FAERS Safety Report 8606007-2 (Version None)
Quarter: 2012Q3

REPORT INFORMATION
  Report Type: 
  Country: None (occurrence: None)
  Receive Date: 20120820
  Receipt Date: 20120813
  Transmission Date: 20120928
  Serious: Yes (Other)
  Sender: FDA-Public Use
  Company Number: US-CELGENEUS-163-21880-12060421

PATIENT
  Sex: Female

DRUGS (4)
  1. REVLIMID [Suspect]
     Dosage: 15 MILLIGRAM
     Route: 048
     Dates: start: 20091201, end: 20100101
  2. REVLIMID [Suspect]
     Indication: MULTIPLE MYELOMA
     Dosage: 25 MILLIGRAM
     Route: 048
     Dates: start: 20090101
  3. REVLIMID [Suspect]
     Dosage: 15 MILLIGRAM
     Route: 048
     Dates: start: 20110901
  4. REVLIMID [Suspect]
     Dosage: 15 MILLIGRAM
     Route: 048
     Dates: start: 20120501

REACTIONS (10)
  - MEMORY IMPAIRMENT [None]
  - LYMPHOEDEMA [None]
  - DRUG DOSE OMISSION [None]
  - PULMONARY CONGESTION [None]
  - DYSPHONIA [None]
  - WHITE BLOOD CELL COUNT DECREASED [None]
  - OSTEOPOROSIS [None]
  - DIARRHOEA [None]
  - DYSPNOEA [None]
  - RASH [None]
